FAERS Safety Report 7905841-1 (Version None)
Quarter: 2011Q4

REPORT INFORMATION
  Report Type: 
  Country: None (occurrence: None)
  Receive Date: 20111108
  Receipt Date: 20111031
  Transmission Date: 20120403
  Serious: Yes (Other)
  Sender: FDA-Public Use
  Company Number: JP-ACCORD-011183

PATIENT
  Age: 60 Year
  Sex: Female

DRUGS (2)
  1. CARBOPLATIN [Suspect]
     Indication: LUNG ADENOCARCINOMA STAGE III
  2. PACLITAXEL [Suspect]
     Indication: LUNG ADENOCARCINOMA STAGE III

REACTIONS (2)
  - OFF LABEL USE [None]
  - INAPPROPRIATE ANTIDIURETIC HORMONE SECRETION [None]
